FAERS Safety Report 8114618-6 (Version None)
Quarter: 2012Q1

REPORT INFORMATION
  Report Type: 
  Country: None (occurrence: None)
  Receive Date: 20120206
  Receipt Date: 20120130
  Transmission Date: 20120608
  Serious: Yes (Hospitalization)
  Sender: FDA-Public Use
  Company Number: US-PFIZER INC-2012026487

PATIENT
  Sex: Male
  Weight: 66.2 kg

DRUGS (1)
  1. SUTENT [Suspect]
     Indication: RENAL CANCER
     Dosage: 37.5 MG, 1X/DAY, TAKE 3 CAPSULES (12.5MG) BY MOUTH DAILY FOR 4 WEEKS ON,2 WEEKS
     Route: 048

REACTIONS (3)
  - DRY SKIN [None]
  - GALLBLADDER DISORDER [None]
  - DIARRHOEA [None]
